FAERS Safety Report 7959425-X (Version None)
Quarter: 2011Q4

REPORT INFORMATION
  Report Type: 
  Country: None (occurrence: None)
  Receive Date: 20111201
  Receipt Date: 20111117
  Transmission Date: 20120403
  Serious: Yes (Other)
  Sender: FDA-Public Use
  Company Number: GGEL20111101495

PATIENT
  Age: 67 Year
  Sex: Female

DRUGS (5)
  1. TOPIRAMATE [Concomitant]
  2. PHENYTOIN [Suspect]
     Indication: CONVULSION PROPHYLAXIS
     Dosage: 460 MG
  3. CLONAZEPAM [Concomitant]
  4. OXCARBAZEPINE [Suspect]
     Indication: CONVULSION PROPHYLAXIS
     Dosage: 300 MG, 2 IN 1 D
  5. QUETIAPINE [Concomitant]

REACTIONS (5)
  - TOXICITY TO VARIOUS AGENTS [None]
  - INHIBITORY DRUG INTERACTION [None]
  - BIPOLAR I DISORDER [None]
  - FALL [None]
  - ATAXIA [None]
